FAERS Safety Report 15885715 (Version 3)
Quarter: 2019Q4

REPORT INFORMATION
  Report Type: Spontaneous
  Country: US (occurrence: US)
  Receive Date: 20190129
  Receipt Date: 20191202
  Transmission Date: 20200122
  Serious: Yes (Other)
  Sender: FDA-Public Use
  Company Number: US-TAKEDA-2019TUS003030

PATIENT

DRUGS (28)
  1. OMEPRAZOLE. [Suspect]
     Active Substance: OMEPRAZOLE
     Indication: GASTROOESOPHAGEAL REFLUX DISEASE
     Dosage: 20 MILLIGRAM
     Route: 048
     Dates: start: 2013
  2. CARISOPRODOL. [Concomitant]
     Active Substance: CARISOPRODOL
  3. LORTAB [Concomitant]
     Active Substance: ACETAMINOPHEN\HYDROCODONE BITARTRATE
  4. INDOMETHACIN                       /00003801/ [Concomitant]
     Active Substance: INDOMETHACIN
  5. TIZANIDINE. [Concomitant]
     Active Substance: TIZANIDINE
  6. SULFAMETH/TRIMETH [Concomitant]
     Active Substance: SULFAMETHOXAZOLE\TRIMETHOPRIM
  7. CIPROFLOXACIN. [Concomitant]
     Active Substance: CIPROFLOXACIN
  8. METHOCARBAMOL. [Concomitant]
     Active Substance: METHOCARBAMOL
  9. BISACODYL. [Concomitant]
     Active Substance: BISACODYL
  10. LEVOTHYROXINE. [Concomitant]
     Active Substance: LEVOTHYROXINE
  11. MELOXICAM. [Concomitant]
     Active Substance: MELOXICAM
  12. CELEBREX [Concomitant]
     Active Substance: CELECOXIB
  13. DEXILANT [Suspect]
     Active Substance: DEXLANSOPRAZOLE
     Indication: GASTROOESOPHAGEAL REFLUX DISEASE
     Dosage: 60 MILLIGRAM, QD
     Route: 048
     Dates: start: 2010
  14. CEPHALEXIN                         /00145501/ [Concomitant]
     Active Substance: CEPHALEXIN
  15. BUTALBITAL [Concomitant]
     Active Substance: BUTALBITAL
  16. AMITRIPTYLINE [Concomitant]
     Active Substance: AMITRIPTYLINE
  17. FENOFIBRATE. [Concomitant]
     Active Substance: FENOFIBRATE
  18. SUMATRIPTAN. [Concomitant]
     Active Substance: SUMATRIPTAN
  19. DIAZEPAM. [Concomitant]
     Active Substance: DIAZEPAM
  20. NEXIUM [Suspect]
     Active Substance: ESOMEPRAZOLE MAGNESIUM
     Indication: GASTROOESOPHAGEAL REFLUX DISEASE
     Dosage: 40 MILLIGRAM
     Route: 048
     Dates: start: 2008
  21. PRILOSEC [Suspect]
     Active Substance: OMEPRAZOLE MAGNESIUM
     Indication: GASTROOESOPHAGEAL REFLUX DISEASE
     Dosage: 40 MILLIGRAM
     Route: 048
     Dates: start: 2008
  22. TRAZODONE [Concomitant]
     Active Substance: TRAZODONE HYDROCHLORIDE
  23. CLONAZEPAM. [Concomitant]
     Active Substance: CLONAZEPAM
  24. PRISTIQ EXTENDED-RELEASE [Concomitant]
     Active Substance: DESVENLAFAXINE SUCCINATE
  25. METRONIDAZOLE. [Concomitant]
     Active Substance: METRONIDAZOLE
  26. AMOXICILLIN. [Concomitant]
     Active Substance: AMOXICILLIN
  27. TRAMADOL. [Concomitant]
     Active Substance: TRAMADOL
  28. OXYCODONE [Concomitant]
     Active Substance: OXYCODONE

REACTIONS (3)
  - End stage renal disease [Unknown]
  - Rebound acid hypersecretion [Unknown]
  - Acute kidney injury [Not Recovered/Not Resolved]

NARRATIVE: CASE EVENT DATE: 20110701
